FAERS Safety Report 6066851-5 (Version None)
Quarter: 2009Q1

REPORT INFORMATION
  Report Type: 
  Country: None (occurrence: None)
  Receive Date: 20090205
  Receipt Date: 20090127
  Transmission Date: 20090719
  Serious: Yes (Life-Threatening)
  Sender: FDA-Public Use
  Company Number: JP-JNJFOC-20090107157

PATIENT
  Sex: Female
  Weight: 48 kg

DRUGS (15)
  1. RISPERIDONE [Suspect]
     Route: 048
  2. RISPERIDONE [Suspect]
     Route: 048
  3. RISPERIDONE [Suspect]
     Route: 048
  4. RISPERIDONE [Suspect]
     Route: 048
  5. RISPERIDONE [Suspect]
     Indication: SCHIZOPHRENIA, PARANOID TYPE
     Route: 048
  6. U-PAN [Concomitant]
     Route: 048
  7. U-PAN [Concomitant]
     Route: 048
  8. ZOLOFT [Concomitant]
     Route: 048
  9. ZOLOFT [Concomitant]
     Route: 048
  10. ZOLOFT [Concomitant]
     Route: 048
  11. ZOLOFT [Concomitant]
     Route: 048
  12. LANDSEN [Concomitant]
     Route: 048
  13. LANDSEN [Concomitant]
     Route: 048
  14. MYSLEE [Concomitant]
  15. MYSLEE [Concomitant]

REACTIONS (1)
  - WHITE BLOOD CELL COUNT DECREASED [None]
